FAERS Safety Report 25269342 (Version 2)
Quarter: 2025Q2

REPORT INFORMATION
  Report Type: Spontaneous
  Country: ID (occurrence: ID)
  Receive Date: 20250505
  Receipt Date: 20250509
  Transmission Date: 20250716
  Serious: Yes (Other)
  Sender: SANDOZ
  Company Number: ID-002147023-NVSC2025ID069759

PATIENT
  Age: 65 Year
  Sex: Female

DRUGS (3)
  1. RIBOCICLIB [Suspect]
     Active Substance: RIBOCICLIB
     Indication: Product used for unknown indication
     Dosage: 600 MG, QD (600 MG, QD (1X DAILY (DAY 1-21 EVERY 28 DAYS)))
     Route: 065
  2. LETROZOLE [Suspect]
     Active Substance: LETROZOLE
     Indication: Product used for unknown indication
     Route: 048
  3. ZOLEDRONIC ACID [Suspect]
     Active Substance: ZOLEDRONIC ACID
     Indication: Product used for unknown indication
     Dosage: 4 MG (EVERY 4 WEEKS)
     Route: 065

REACTIONS (3)
  - Laboratory test abnormal [Unknown]
  - Neutropenia [Unknown]
  - Leukopenia [Unknown]
